FAERS Safety Report 17280612 (Version 2)
Quarter: 2022Q1

REPORT INFORMATION
  Report Type: Spontaneous
  Country: US (occurrence: US)
  Receive Date: 20200117
  Receipt Date: 20220222
  Transmission Date: 20220423
  Serious: Yes (Other)
  Sender: FDA-Public Use
  Company Number: US-UCBSA-2019009919

PATIENT
  Age: 16 Year
  Sex: Female

DRUGS (2)
  1. KEPPRA [Suspect]
     Active Substance: LEVETIRACETAM
     Indication: Juvenile myoclonic epilepsy
     Dosage: 50 MG-150 MG, 2X/DAY (BID)
     Dates: start: 201710, end: 201803
  2. LAMICTAL [Concomitant]
     Active Substance: LAMOTRIGINE
     Indication: Product used for unknown indication
     Dosage: UNK
     Dates: start: 201803

REACTIONS (10)
  - Suicidal behaviour [Unknown]
  - Fatigue [Recovered/Resolved]
  - Nightmare [Recovered/Resolved]
  - Anxiety [Recovered/Resolved]
  - Mood swings [Recovered/Resolved]
  - Feeling abnormal [Recovered/Resolved]
  - Depression [Unknown]
  - Obsessive-compulsive disorder [Unknown]
  - Educational problem [Unknown]
  - Intentional product misuse [Unknown]

NARRATIVE: CASE EVENT DATE: 20171001
